FAERS Safety Report 17144626 (Version 1)
Quarter: 2019Q4

REPORT INFORMATION
  Report Type: Spontaneous
  Country: US (occurrence: US)
  Receive Date: 20191212
  Receipt Date: 20191212
  Transmission Date: 20200122
  Serious: Yes (Other)
  Sender: FDA-Public Use
  Company Number: US-ROCHE-2492555

PATIENT
  Sex: Female

DRUGS (12)
  1. ALEVE [Concomitant]
     Active Substance: NAPROXEN SODIUM
     Route: 048
  2. BUSPIRONE HCL [Concomitant]
     Active Substance: BUSPIRONE HYDROCHLORIDE
     Route: 048
  3. CLONAZEPAM. [Concomitant]
     Active Substance: CLONAZEPAM
     Route: 048
  4. PANTOPRAZOLE [Concomitant]
     Active Substance: PANTOPRAZOLE
     Route: 048
  5. SEROQUEL XR [Concomitant]
     Active Substance: QUETIAPINE FUMARATE
     Route: 065
  6. LEVOTHYROXINE. [Concomitant]
     Active Substance: LEVOTHYROXINE
     Route: 048
  7. MONTELUKAST [Concomitant]
     Active Substance: MONTELUKAST SODIUM
     Route: 048
  8. PROBIOTICA [Concomitant]
     Active Substance: PROBIOTICS NOS
     Route: 048
  9. FLONASE [Concomitant]
     Active Substance: FLUTICASONE PROPIONATE
     Route: 065
  10. ESBRIET [Suspect]
     Active Substance: PIRFENIDONE
     Indication: IDIOPATHIC PULMONARY FIBROSIS
     Dosage: TAKE 2 TABLETS BY MOUTH THREE TIMES A DAY WITH MEALS AND INCRLASL TO 3 TABLETS THREE  TIMES A DAY IF
     Route: 048
  11. AZITHROMYCIN ANHYDROUS. [Concomitant]
     Active Substance: AZITHROMYCIN ANHYDROUS
     Route: 048
  12. CALCIUM [Concomitant]
     Active Substance: CALCIUM
     Route: 048

REACTIONS (1)
  - Pneumonia [Not Recovered/Not Resolved]
